FAERS Safety Report 10088061 (Version 1)
Quarter: 2014Q2

REPORT INFORMATION
  Report Type: Spontaneous
  Country: US (occurrence: US)
  Receive Date: 20140421
  Receipt Date: 20140421
  Transmission Date: 20141212
  Serious: No
  Sender: FDA-Public Use
  Company Number: US-009507513-1404USA010212

PATIENT
  Sex: 0

DRUGS (1)
  1. CLARITIN [Suspect]
     Dosage: UNK
     Route: 048
     Dates: end: 201404

REACTIONS (1)
  - Drug ineffective [Unknown]
